FAERS Safety Report 26151020 (Version 2)
Quarter: 2025Q4

REPORT INFORMATION
  Report Type: Spontaneous
  Country: CN (occurrence: CN)
  Receive Date: 20251212
  Receipt Date: 20251217
  Transmission Date: 20260117
  Serious: Yes (Other)
  Sender: MERCK SHARP & DOHME LLC
  Company Number: CN-009507513-2358245

PATIENT
  Sex: Male

DRUGS (2)
  1. PEMBROLIZUMAB [Suspect]
     Active Substance: PEMBROLIZUMAB
     Indication: Adenocarcinoma of colon
     Dosage: TIME INTERVAL: 0.33333333 WEEKS: 200 MG, 3 TIMES A WEEK
     Dates: start: 202311, end: 202406
  2. PEMBROLIZUMAB [Suspect]
     Active Substance: PEMBROLIZUMAB
     Indication: Adenocarcinoma of colon
     Dosage: 200 MG ONCE EVERY 4 WEEKS
     Dates: start: 202407

REACTIONS (4)
  - Immune-mediated adverse reaction [Unknown]
  - Inappropriate schedule of product administration [Unknown]
  - Ankylosing spondylitis [Recovering/Resolving]
  - Inappropriate schedule of product administration [Unknown]

NARRATIVE: CASE EVENT DATE: 20231101
